FAERS Safety Report 20152581 (Version 1)
Quarter: 2021Q4

REPORT INFORMATION
  Report Type: Spontaneous
  Country: US (occurrence: US)
  Receive Date: 20211206
  Receipt Date: 20211206
  Transmission Date: 20220303
  Serious: No
  Sender: FDA-Public Use
  Company Number: US-AMGEN-USASP2021192302

PATIENT
  Age: 39 Year
  Sex: Female

DRUGS (7)
  1. OTEZLA [Suspect]
     Active Substance: APREMILAST
     Indication: Behcet^s syndrome
     Dosage: 30 MILLIGRAM, QD
     Route: 048
     Dates: start: 2021
  2. VITAMIN B12 [Concomitant]
     Active Substance: CYANOCOBALAMIN
     Dosage: UNK
  3. VITAMINS [Concomitant]
     Active Substance: VITAMINS
  4. TYLENOL [Concomitant]
     Active Substance: ACETAMINOPHEN
  5. ACETAMINOPHEN\CAFFEINE [Concomitant]
     Active Substance: ACETAMINOPHEN\CAFFEINE
  6. PREDNISONE [Concomitant]
     Active Substance: PREDNISONE
  7. BLISOVI FE 1.5/30 [Concomitant]
     Active Substance: ETHINYL ESTRADIOL\NORETHINDRONE ACETATE

REACTIONS (1)
  - Product dose omission issue [Unknown]

NARRATIVE: CASE EVENT DATE: 20210101
